FAERS Safety Report 13877853 (Version 4)
Quarter: 2017Q4

REPORT INFORMATION
  Report Type: Report from Study
  Country: US (occurrence: US)
  Receive Date: 20170817
  Receipt Date: 20171110
  Transmission Date: 20180320
  Serious: Yes (Death, Other)
  Sender: FDA-Public Use
  Company Number: US-BAYER-2017-137521

PATIENT
  Age: 76 Year
  Sex: Male
  Weight: 93.9 kg

DRUGS (13)
  1. NEXAVAR [Suspect]
     Active Substance: SORAFENIB
     Indication: HEPATOCELLULAR CARCINOMA
     Dosage: 400 MG, BID
     Route: 048
     Dates: start: 20170621, end: 2017
  2. ALBUTEROL. [Concomitant]
     Active Substance: ALBUTEROL
     Dosage: 2 PUFF(S), PRN
  3. PROPRANOLOL HYDROCHLORIDE. [Concomitant]
     Active Substance: PROPRANOLOL HYDROCHLORIDE
  4. ALBUTEROL SULFATE. [Concomitant]
     Active Substance: ALBUTEROL SULFATE
  5. PROPRANOLOL [Concomitant]
     Active Substance: PROPRANOLOL HYDROCHLORIDE
     Dosage: 10 MG, BID
  6. DOXORUBICIN [Concomitant]
     Active Substance: DOXORUBICIN
     Dosage: UNK
     Dates: end: 201702
  7. OMEPRAZOLE. [Concomitant]
     Active Substance: OMEPRAZOLE
  8. VITAMIN D [Concomitant]
     Active Substance: CHOLECALCIFEROL
     Dosage: DAILY DOSE 800 UNIT
  9. COLACE [Concomitant]
     Active Substance: DOCUSATE SODIUM
  10. OMEPRAZOLE. [Concomitant]
     Active Substance: OMEPRAZOLE
     Dosage: 40 MG, QD
  11. CALCIUM CARBONATE. [Concomitant]
     Active Substance: CALCIUM CARBONATE
     Dosage: 500 MG, BID
  12. NEXAVAR [Suspect]
     Active Substance: SORAFENIB
     Indication: HEPATOCELLULAR CARCINOMA
     Dosage: 400 MG, BID
     Route: 048
     Dates: start: 2017
  13. SALBUTEROL [Concomitant]

REACTIONS (31)
  - Cirrhosis alcoholic [None]
  - Oliguria [Fatal]
  - Asterixis [None]
  - Coma [Fatal]
  - Diarrhoea [None]
  - Headache [None]
  - Asthenia [None]
  - Dizziness postural [None]
  - Hepatic enzyme increased [None]
  - Hepatitis fulminant [Fatal]
  - Drug-induced liver injury [Fatal]
  - Confusional state [Fatal]
  - Alpha 1 foetoprotein increased [None]
  - Mental disorder [None]
  - Jaundice [None]
  - Acute hepatic failure [None]
  - Hepatic encephalopathy [None]
  - Toxicity to various agents [None]
  - Dizziness [None]
  - Asthenia [Fatal]
  - Jaundice [Fatal]
  - Blood bilirubin increased [None]
  - Hepatocellular carcinoma [None]
  - Hypersomnia [None]
  - Fatigue [Fatal]
  - Respiratory disorder [None]
  - Weight decreased [None]
  - Fatigue [None]
  - Pruritus [None]
  - Nausea [Fatal]
  - Decreased appetite [None]

NARRATIVE: CASE EVENT DATE: 2017
